FAERS Safety Report 12908224 (Version 1)
Quarter: 2016Q4

REPORT INFORMATION
  Report Type: Report from Study
  Country: US (occurrence: US)
  Receive Date: 20161103
  Receipt Date: 20161103
  Transmission Date: 20170207
  Serious: Yes (Hospitalization, Other)
  Sender: FDA-Public Use
  Company Number: US-GILEAD-2016-0236941

PATIENT
  Age: 87 Year
  Sex: Female

DRUGS (13)
  1. DOCUSATE [Concomitant]
     Active Substance: DOCUSATE
  2. AMBRISENTAN [Suspect]
     Active Substance: AMBRISENTAN
     Indication: PULMONARY HYPERTENSION
     Dosage: 5 MG, QD
     Route: 065
     Dates: start: 20160824
  3. SPIRONOLACTONE. [Concomitant]
     Active Substance: SPIRONOLACTONE
  4. MEXILETINE [Concomitant]
     Active Substance: MEXILETINE
  5. LISINOPRIL. [Concomitant]
     Active Substance: LISINOPRIL
  6. AMILORIDE [Concomitant]
     Active Substance: AMILORIDE
  7. CALCIUM [Concomitant]
     Active Substance: CALCIUM
  8. ONDANSETRON [Concomitant]
     Active Substance: ONDANSETRON
  9. LASIX [Concomitant]
     Active Substance: FUROSEMIDE
  10. CARVEDILOL. [Concomitant]
     Active Substance: CARVEDILOL
  11. OMEPRAZOLE. [Concomitant]
     Active Substance: OMEPRAZOLE
  12. LEVOTHYROXINE. [Concomitant]
     Active Substance: LEVOTHYROXINE
  13. VITAMIN D                          /00107901/ [Concomitant]
     Active Substance: ERGOCALCIFEROL

REACTIONS (2)
  - Chemotherapy [Unknown]
  - Hypotension [Unknown]
